FAERS Safety Report 8987892 (Version 2)
Quarter: 2013Q1

REPORT INFORMATION
  Report Type: Spontaneous
  Country: GB (occurrence: GB)
  Receive Date: 20121227
  Receipt Date: 20130110
  Transmission Date: 20140127
  Serious: Yes (Life-Threatening)
  Sender: FDA-Public Use
  Company Number: GB-GLAXOSMITHKLINE-B0854053A

PATIENT
  Age: 21 Month
  Sex: Male

DRUGS (1)
  1. NIQUITIN CQ 4MG LOZENGE [Suspect]
     Indication: PRODUCT USED FOR UNKNOWN INDICATION
     Route: 065
     Dates: start: 20121218, end: 20121218

REACTIONS (7)
  - Coma [Unknown]
  - Gastrointestinal toxicity [Unknown]
  - Gastrointestinal disorder [Unknown]
  - Nausea [Unknown]
  - Vomiting [Unknown]
  - Overdose [Unknown]
  - Malaise [Unknown]
